FAERS Safety Report 5092021-3 (Version None)
Quarter: 2006Q3

REPORT INFORMATION
  Report Type: 
  Country: None (occurrence: None)
  Receive Date: 20060829
  Receipt Date: 20060714
  Transmission Date: 20061208
  Serious: Yes (Other)
  Sender: FDA-Public Use
  Company Number: PHEH2006US09088

PATIENT
  Age: 23 Year
  Sex: Female
  Weight: 54.421 kg

DRUGS (11)
  1. ZELNORM [Suspect]
     Indication: ABDOMINAL PAIN
     Dosage: 6 MG, BID
     Route: 048
     Dates: start: 20060713, end: 20060715
  2. TOPROL-XL [Concomitant]
     Dosage: UNK, QD
  3. MIDODRINE HYDROCHLORIDE [Concomitant]
  4. FLORINEF [Concomitant]
     Dosage: UNK, BID
  5. NORPACE [Concomitant]
     Dosage: UNK, BID
  6. TOPAMAX [Concomitant]
     Dosage: UNK, BID
  7. FLEXERIL [Concomitant]
     Dosage: UNK, PRN
  8. SODIUM [Concomitant]
     Dosage: UNK, QD
  9. MAXALT /USA/ [Concomitant]
     Dosage: UNK, PRN
  10. CELEBREX [Concomitant]
     Dosage: UNK, QD
  11. LORTAB [Concomitant]
     Dosage: UNK, PRN

REACTIONS (6)
  - ABDOMINAL DISTENSION [None]
  - ABDOMINAL PAIN [None]
  - DEHYDRATION [None]
  - DIARRHOEA [None]
  - DIZZINESS [None]
  - VOMITING [None]
